FAERS Safety Report 18876297 (Version 1)
Quarter: 2021Q1

REPORT INFORMATION
  Report Type: Spontaneous
  Country: FR (occurrence: FR)
  Receive Date: 20210211
  Receipt Date: 20210211
  Transmission Date: 20210420
  Serious: Yes (Hospitalization, Other)
  Sender: FDA-Public Use
  Company Number: FR-AMGEN-FRASP2021021617

PATIENT
  Age: 30 Year
  Sex: Female

DRUGS (1)
  1. ENBREL [Suspect]
     Active Substance: ETANERCEPT
     Indication: SPONDYLITIS
     Dosage: 1 DF
     Route: 058
     Dates: start: 2020

REACTIONS (2)
  - Off label use [Unknown]
  - Glioma [Not Recovered/Not Resolved]

NARRATIVE: CASE EVENT DATE: 2020
